FAERS Safety Report 7340200-4 (Version None)
Quarter: 2011Q1

REPORT INFORMATION
  Report Type: 
  Country: None (occurrence: None)
  Receive Date: 20110309
  Receipt Date: 20110228
  Transmission Date: 20110831
  Serious: Yes (Other)
  Sender: FDA-Public Use
  Company Number: US-BRISTOL-MYERS SQUIBB COMPANY-15574783

PATIENT
  Age: 68 Year
  Sex: Female
  Weight: 84 kg

DRUGS (5)
  1. PREDNISONE [Concomitant]
     Indication: RHEUMATOID ARTHRITIS
  2. NEURONTIN [Suspect]
     Indication: NERVOUS SYSTEM DISORDER
     Dosage: INITIALLY 300MG,REDUCED TO100MG,3/5TIMES ADAY.
     Route: 048
     Dates: start: 20080101
  3. ORENCIA [Suspect]
     Dates: start: 20100801
  4. XANAX [Concomitant]
     Indication: PSYCHOMOTOR HYPERACTIVITY
  5. NORCO [Concomitant]
     Dosage: 1DF=10/325MG

REACTIONS (12)
  - ABASIA [None]
  - SALIVARY HYPERSECRETION [None]
  - NERVOUSNESS [None]
  - PRURITUS GENERALISED [None]
  - TREMOR [None]
  - REGURGITATION [None]
  - RASH [None]
  - OEDEMA PERIPHERAL [None]
  - INCREASED APPETITE [None]
  - AMNESIA [None]
  - WEIGHT INCREASED [None]
  - FATIGUE [None]
